FAERS Safety Report 5518149-9 (Version None)
Quarter: 2007Q4

REPORT INFORMATION
  Report Type: 
  Country: None (occurrence: None)
  Receive Date: 20071113
  Receipt Date: 20071113
  Transmission Date: 20080405
  Serious: Yes (Other)
  Sender: FDA-Public Use
  Company Number: None

PATIENT
  Sex: Female

DRUGS (2)
  1. GENERIC OXYCODONE ER 40 MG [Suspect]
     Indication: SPINAL OSTEOARTHRITIS
     Dosage: 4 TAB BID PO
     Route: 048
     Dates: start: 20050101
  2. GENERIC OXYCODONE ER  20 MG [Suspect]
     Dosage: 2 TAB BID PO
     Route: 048

REACTIONS (3)
  - ABDOMINAL DISCOMFORT [None]
  - DRUG EFFECT DECREASED [None]
  - NAUSEA [None]
